FAERS Safety Report 12320545 (Version 3)
Quarter: 2016Q4

REPORT INFORMATION
  Report Type: Spontaneous
  Country: US (occurrence: US)
  Receive Date: 20160429
  Receipt Date: 20161209
  Transmission Date: 20170207
  Serious: Yes (Death)
  Sender: FDA-Public Use
  Company Number: US-B.I. PHARMACEUTICALS,INC./RIDGEFIELD-2016-BI-27354BI

PATIENT
  Age: 81 Year
  Sex: Female
  Weight: 50.8 kg

DRUGS (11)
  1. MAG-OX [Concomitant]
     Active Substance: MAGNESIUM OXIDE
     Indication: PRODUCT USED FOR UNKNOWN INDICATION
     Dosage: DISPENSE: 180; 9 REFILLS
     Route: 048
     Dates: start: 20110830
  2. DIGOXIN. [Concomitant]
     Active Substance: DIGOXIN
     Indication: PRODUCT USED FOR UNKNOWN INDICATION
     Dosage: STRENGTH: 125 MCG; DISPENSE: 90; 0 REFILLS
     Route: 048
     Dates: start: 20131028
  3. COREG [Concomitant]
     Active Substance: CARVEDILOL
     Indication: PRODUCT USED FOR UNKNOWN INDICATION
     Dosage: DISPENSE: 180; 3 REFILLS
     Route: 048
     Dates: start: 20110726
  4. COREG [Concomitant]
     Active Substance: CARVEDILOL
     Dosage: DISPENSE: 180; 3 REFILLS
     Route: 048
     Dates: start: 20131106
  5. CARDIZEM CD [Concomitant]
     Active Substance: DILTIAZEM HYDROCHLORIDE
     Indication: PRODUCT USED FOR UNKNOWN INDICATION
     Dosage: EXTENDED RELEASE; DISPENSE: 90; 3 REFILLS
     Route: 048
     Dates: start: 20110506
  6. DONEPEZIL. [Concomitant]
     Active Substance: DONEPEZIL
     Indication: PRODUCT USED FOR UNKNOWN INDICATION
     Dosage: DISINTEGRATING; DISPENSE: 90; 0 REFILLS
     Route: 048
     Dates: start: 20131028
  7. DILITIZEM [Concomitant]
     Indication: PRODUCT USED FOR UNKNOWN INDICATION
     Route: 065
  8. ARACEPT [Concomitant]
     Indication: PRODUCT USED FOR UNKNOWN INDICATION
     Route: 065
  9. PRADAXA [Suspect]
     Active Substance: DABIGATRAN ETEXILATE MESYLATE
     Indication: ATRIAL FIBRILLATION
     Dosage: DISPENSE: 180; 3 REFILLS
     Route: 048
     Dates: start: 20110114, end: 20140418
  10. DEMADEX [Concomitant]
     Active Substance: TORSEMIDE
     Indication: PRODUCT USED FOR UNKNOWN INDICATION
     Dosage: DIPENSE: 90; 3 REFILLS
     Route: 048
     Dates: start: 20131106
  11. KLOR-CON M20 [Concomitant]
     Active Substance: POTASSIUM CHLORIDE
     Indication: PRODUCT USED FOR UNKNOWN INDICATION
     Dosage: EXTENDED RELEASE; DISPENSE: 60; 0 REFILLS
     Route: 048
     Dates: start: 20130225

REACTIONS (1)
  - Subarachnoid haemorrhage [Fatal]

NARRATIVE: CASE EVENT DATE: 20140418
